FAERS Safety Report 4503070-5 (Version None)
Quarter: 2004Q4

REPORT INFORMATION
  Report Type: 
  Country: None (occurrence: None)
  Receive Date: 20041116
  Receipt Date: 20041116
  Transmission Date: 20050328
  Serious: Yes (Life-Threatening)
  Sender: FDA-Public Use
  Company Number: None

PATIENT
  Age: 37 Year
  Sex: Female
  Weight: 62.5964 kg

DRUGS (9)
  1. WELLBUTRIN XL [Suspect]
     Indication: ANXIETY
     Dosage: 150 MG ONCE PER DAY ORAL
     Route: 048
     Dates: start: 20041016, end: 20041110
  2. WELLBUTRIN XL [Suspect]
     Indication: DEPRESSION
     Dosage: 150 MG ONCE PER DAY ORAL
     Route: 048
     Dates: start: 20041016, end: 20041110
  3. WELLBUTRIN XL [Suspect]
     Indication: SMOKING CESSATION THERAPY
     Dosage: 150 MG ONCE PER DAY ORAL
     Route: 048
     Dates: start: 20041016, end: 20041110
  4. WELLBUTRIN XL [Suspect]
  5. MULTIVITAMIN SUPPLEMENT [Concomitant]
  6. GLUCOSAMINE CHONDROINTIN [Concomitant]
  7. ALPHA LIPOIC ACID [Concomitant]
  8. OMEGA 3 [Concomitant]
  9. LORATADINE [Concomitant]

REACTIONS (1)
  - ANAPHYLACTIC REACTION [None]
